FAERS Safety Report 7278362-X (Version None)
Quarter: 2011Q1

REPORT INFORMATION
  Report Type: 
  Country: None (occurrence: None)
  Receive Date: 20110202
  Receipt Date: 20110202
  Transmission Date: 20110831
  Serious: Yes (Other)
  Sender: FDA-Public Use
  Company Number: None

PATIENT
  Sex: Male
  Weight: 102.0593 kg

DRUGS (3)
  1. SYSTANE ULTRA 10 ML ALCON LABORATORIES, INC [Suspect]
     Indication: DRY EYE
     Dosage: 1 GTTS AS NEEDED TOP
     Route: 061
  2. SYSTANE ULTRA 10 ML ALCON LABORATORIES, INC [Suspect]
     Indication: PTERYGIUM
     Dosage: 1 GTTS AS NEEDED TOP
     Route: 061
  3. GENTEEL EYE LUBRICANT [Concomitant]

REACTIONS (3)
  - OCULAR HYPERAEMIA [None]
  - EYE IRRITATION [None]
  - PHOTOPHOBIA [None]
